FAERS Safety Report 9592481 (Version 1)
Quarter: 2013Q4

REPORT INFORMATION
  Report Type: Spontaneous
  Country: US (occurrence: None)
  Receive Date: 20131003
  Receipt Date: 20131003
  Transmission Date: 20140711
  Serious: Yes (Hospitalization)
  Sender: FDA-Public Use
  Company Number: None

PATIENT
  Age: 74 Year
  Sex: Male
  Weight: 82 kg

DRUGS (10)
  1. WARFARIN [Suspect]
     Indication: ATRIAL FIBRILLATION
     Dosage: 1 MG, QD, ORAL?UNK-PRIOR TO ADMISSION
     Route: 048
  2. PROPRANOLOL [Concomitant]
  3. PRIMIDONE [Concomitant]
  4. KC1 20 MEQ [Concomitant]
  5. OMEPRAZOLE [Concomitant]
  6. MAGNESIUM OXIDE [Concomitant]
  7. FUROSEMIDE [Concomitant]
  8. FERROUS SULFATE [Concomitant]
  9. DIGOXIN [Concomitant]
  10. CHOLECALCIFEROL [Concomitant]

REACTIONS (5)
  - Epistaxis [None]
  - Pneumonia [None]
  - Hepatic cirrhosis [None]
  - Ascites [None]
  - Portal hypertension [None]
